FAERS Safety Report 21055860 (Version 1)
Quarter: 2022Q3

REPORT INFORMATION
  Report Type: Spontaneous
  Country: FR (occurrence: FR)
  Receive Date: 20220708
  Receipt Date: 20220708
  Transmission Date: 20221027
  Serious: Yes (Hospitalization)
  Sender: FDA-Public Use
  Company Number: None

PATIENT
  Age: 46 Year
  Sex: Male
  Weight: 65 kg

DRUGS (4)
  1. CARBOPLATIN [Suspect]
     Active Substance: CARBOPLATIN
     Indication: T-cell lymphoma
     Dosage: STRENGTH: 10 MG/ML
     Dates: start: 20220503
  2. ETOPOSIDE [Suspect]
     Active Substance: ETOPOSIDE
     Indication: T-cell lymphoma
     Dosage: 100MG/M  , STRENGTH: 200 MG/10 ML
     Dates: start: 20220503
  3. IFOSFAMIDE [Suspect]
     Active Substance: IFOSFAMIDE
     Indication: T-cell lymphoma
     Dosage: 5G/M  ,FORM STRENGTH : 2000 MG POWDER FOR PARENTERAL USE
     Dates: start: 20220503
  4. ADCETRIS [Suspect]
     Active Substance: BRENTUXIMAB VEDOTIN
     Indication: T-cell lymphoma
     Dosage: 1.8MG/KG ,FORM STRENGTH :50 MG
     Dates: start: 20220503

REACTIONS (2)
  - Papilloedema [Not Recovered/Not Resolved]
  - Visual acuity reduced [Not Recovered/Not Resolved]

NARRATIVE: CASE EVENT DATE: 20220612
